FAERS Safety Report 12442581 (Version 1)
Quarter: 2016Q2

REPORT INFORMATION
  Report Type: Spontaneous
  Country: US (occurrence: None)
  Receive Date: 20160606
  Receipt Date: 20160606
  Transmission Date: 20160815
  Serious: Yes (Life-Threatening)
  Sender: FDA-Public Use
  Company Number: None

PATIENT
  Age: 35 Year
  Sex: Female
  Weight: 63.5 kg

DRUGS (19)
  1. LYRICA [Concomitant]
     Active Substance: PREGABALIN
  2. ATIVAN [Concomitant]
     Active Substance: LORAZEPAM
  3. PEPSID AC [Concomitant]
  4. L-METHYLFOLATE CANE [Concomitant]
  5. WALKER [Concomitant]
  6. CULTURELLE PROBIOTIC [Concomitant]
  7. ZYRTEC [Concomitant]
     Active Substance: CETIRIZINE HYDROCHLORIDE
  8. COQ10 [Concomitant]
     Active Substance: UBIDECARENONE
  9. FISH OIL [Concomitant]
     Active Substance: FISH OIL
  10. N-ACETYL CYSTEINE [Concomitant]
  11. WHEELCHAIR [Concomitant]
     Active Substance: DEVICE
  12. MIDODRINE [Concomitant]
     Active Substance: MIDODRINE
  13. FLUDROCORTISONE [Concomitant]
     Active Substance: FLUDROCORTISONE
  14. MULTIVITAMIN [Concomitant]
     Active Substance: VITAMINS
  15. MIGRELIEF [Concomitant]
  16. BUTTERBUR EXTRACT [Concomitant]
  17. TRAMADOL, 50 MG [Suspect]
     Active Substance: TRAMADOL
     Indication: PAIN
     Dosage: 1 TABLET TWICE A DAY TAKEN BY MOUTH
     Route: 048
     Dates: start: 20160227, end: 20160516
  18. GABAPENTIN. [Concomitant]
     Active Substance: GABAPENTIN
  19. SINGULAIR [Concomitant]
     Active Substance: MONTELUKAST SODIUM

REACTIONS (2)
  - Serotonin syndrome [None]
  - Extra dose administered [None]

NARRATIVE: CASE EVENT DATE: 20160516
